FAERS Safety Report 19645645 (Version 11)
Quarter: 2023Q1

REPORT INFORMATION
  Report Type: Report from Study
  Country: JP (occurrence: JP)
  Receive Date: 20210802
  Receipt Date: 20230126
  Transmission Date: 20230418
  Serious: Yes (Hospitalization)
  Sender: FDA-Public Use
  Company Number: NVSJ2021JP011395

PATIENT
  Age: 7 Year
  Sex: Female
  Weight: 28.4 kg

DRUGS (56)
  1. ILARIS [Suspect]
     Active Substance: CANAKINUMAB
     Indication: Still^s disease
     Dosage: 110 MG
     Route: 058
     Dates: start: 20200910
  2. ILARIS [Suspect]
     Active Substance: CANAKINUMAB
     Dosage: 110 MG
     Route: 058
     Dates: start: 20201008
  3. ILARIS [Suspect]
     Active Substance: CANAKINUMAB
     Dosage: 112.5 MG
     Route: 058
     Dates: start: 20201105
  4. ILARIS [Suspect]
     Active Substance: CANAKINUMAB
     Dosage: 112.5 MG
     Route: 058
     Dates: start: 20201203
  5. ILARIS [Suspect]
     Active Substance: CANAKINUMAB
     Dosage: 112.5 MG
     Route: 058
     Dates: start: 20201230
  6. ILARIS [Suspect]
     Active Substance: CANAKINUMAB
     Dosage: 112.5 MG
     Route: 058
     Dates: start: 20210128
  7. ILARIS [Suspect]
     Active Substance: CANAKINUMAB
     Dosage: 112.5 MG
     Route: 058
     Dates: start: 20210225
  8. ILARIS [Suspect]
     Active Substance: CANAKINUMAB
     Dosage: 120 MG
     Route: 058
     Dates: start: 20210325
  9. ILARIS [Suspect]
     Active Substance: CANAKINUMAB
     Dosage: 120 MG
     Route: 058
     Dates: start: 20210422
  10. ILARIS [Suspect]
     Active Substance: CANAKINUMAB
     Dosage: 120 MG
     Route: 058
     Dates: start: 20210520
  11. ILARIS [Suspect]
     Active Substance: CANAKINUMAB
     Dosage: 120 MG
     Route: 058
     Dates: start: 20210617
  12. ILARIS [Suspect]
     Active Substance: CANAKINUMAB
     Dosage: 120 MG
     Route: 058
     Dates: start: 20210715
  13. ILARIS [Suspect]
     Active Substance: CANAKINUMAB
     Dosage: 120 MG
     Route: 058
     Dates: start: 20210812
  14. ILARIS [Suspect]
     Active Substance: CANAKINUMAB
     Dosage: 120 MG
     Route: 058
     Dates: start: 20210909
  15. ILARIS [Suspect]
     Active Substance: CANAKINUMAB
     Dosage: 120 MG
     Route: 058
     Dates: start: 20211007
  16. ILARIS [Suspect]
     Active Substance: CANAKINUMAB
     Dosage: 120 MG
     Route: 058
     Dates: start: 20211104
  17. ILARIS [Suspect]
     Active Substance: CANAKINUMAB
     Dosage: 120 MG
     Route: 058
     Dates: start: 20211202
  18. ILARIS [Suspect]
     Active Substance: CANAKINUMAB
     Dosage: 120 MG
     Route: 058
     Dates: start: 20211228
  19. ILARIS [Suspect]
     Active Substance: CANAKINUMAB
     Dosage: 120 MG
     Route: 058
     Dates: start: 20220127
  20. ILARIS [Suspect]
     Active Substance: CANAKINUMAB
     Dosage: 120 MG
     Route: 058
     Dates: start: 20220224
  21. ILARIS [Suspect]
     Active Substance: CANAKINUMAB
     Dosage: 120 MG
     Route: 058
     Dates: start: 20220324
  22. ILARIS [Suspect]
     Active Substance: CANAKINUMAB
     Dosage: 120 MG
     Route: 058
     Dates: start: 20220421
  23. ILARIS [Suspect]
     Active Substance: CANAKINUMAB
     Dosage: 120 MG
     Route: 058
     Dates: start: 20220519
  24. ILARIS [Suspect]
     Active Substance: CANAKINUMAB
     Dosage: 120 MG
     Route: 058
     Dates: start: 20220616
  25. ILARIS [Suspect]
     Active Substance: CANAKINUMAB
     Dosage: 120 MG
     Route: 058
     Dates: start: 20220714
  26. ILARIS [Suspect]
     Active Substance: CANAKINUMAB
     Dosage: 120 MG
     Route: 058
     Dates: start: 20220817
  27. ILARIS [Suspect]
     Active Substance: CANAKINUMAB
     Dosage: 120 MG
     Route: 058
     Dates: start: 20220915
  28. PREDNISOLONE [Concomitant]
     Active Substance: PREDNISOLONE
     Indication: Still^s disease
     Dosage: 3 MG
     Route: 048
     Dates: start: 20200310, end: 20200506
  29. PREDNISOLONE [Concomitant]
     Active Substance: PREDNISOLONE
     Dosage: 2.5 MG
     Route: 048
     Dates: start: 20200507, end: 20200630
  30. PREDNISOLONE [Concomitant]
     Active Substance: PREDNISOLONE
     Dosage: 2 MG
     Route: 048
     Dates: start: 20200701, end: 20200825
  31. PREDNISOLONE [Concomitant]
     Active Substance: PREDNISOLONE
     Dosage: 20 MG
     Route: 048
     Dates: start: 20200902, end: 20200909
  32. PREDNISOLONE [Concomitant]
     Active Substance: PREDNISOLONE
     Dosage: 15 MG
     Route: 048
     Dates: start: 20200910, end: 20200924
  33. PREDNISOLONE [Concomitant]
     Active Substance: PREDNISOLONE
     Dosage: 12.5 MG
     Route: 048
     Dates: start: 20200925, end: 20201104
  34. PREDNISOLONE [Concomitant]
     Active Substance: PREDNISOLONE
     Dosage: 11 MG
     Route: 048
     Dates: start: 20201105, end: 20201203
  35. PREDNISOLONE [Concomitant]
     Active Substance: PREDNISOLONE
     Dosage: 10 MG
     Route: 048
     Dates: start: 20201204, end: 20201218
  36. PREDNISOLONE [Concomitant]
     Active Substance: PREDNISOLONE
     Dosage: 9 MG
     Route: 048
     Dates: start: 20201219, end: 20210103
  37. PREDNISOLONE [Concomitant]
     Active Substance: PREDNISOLONE
     Dosage: 8 MG
     Route: 048
     Dates: start: 20210104, end: 20210114
  38. PREDNISOLONE [Concomitant]
     Active Substance: PREDNISOLONE
     Dosage: 7.5 MG
     Route: 048
     Dates: start: 20210115, end: 20210128
  39. PREDNISOLONE [Concomitant]
     Active Substance: PREDNISOLONE
     Dosage: 7 MG
     Route: 048
     Dates: start: 20210129, end: 20210211
  40. PREDNISOLONE [Concomitant]
     Active Substance: PREDNISOLONE
     Dosage: 6.5 MG
     Route: 048
     Dates: start: 20210212, end: 20210224
  41. PREDNISOLONE [Concomitant]
     Active Substance: PREDNISOLONE
     Dosage: 6 MG
     Route: 048
     Dates: start: 20210225, end: 20210311
  42. PREDNISOLONE [Concomitant]
     Active Substance: PREDNISOLONE
     Dosage: 5.5 MG
     Route: 048
     Dates: start: 20210312, end: 20210324
  43. PREDNISOLONE [Concomitant]
     Active Substance: PREDNISOLONE
     Dosage: 5 MG
     Route: 048
     Dates: start: 20210325, end: 20210421
  44. PREDNISOLONE [Concomitant]
     Active Substance: PREDNISOLONE
     Dosage: 4.5 MG
     Route: 048
     Dates: start: 20210422, end: 20210519
  45. PREDNISOLONE [Concomitant]
     Active Substance: PREDNISOLONE
     Dosage: 4 MG
     Route: 048
     Dates: start: 20210520, end: 20210616
  46. PREDNISOLONE [Concomitant]
     Active Substance: PREDNISOLONE
     Dosage: 3.5 MG
     Route: 048
     Dates: start: 20210617, end: 20210714
  47. PREDNISOLONE [Concomitant]
     Active Substance: PREDNISOLONE
     Dosage: 3 MG
     Route: 048
     Dates: start: 20210715, end: 20210811
  48. PREDNISOLONE [Concomitant]
     Active Substance: PREDNISOLONE
     Dosage: 2.5 MG
     Route: 048
     Dates: start: 20210812, end: 20210908
  49. PREDNISOLONE [Concomitant]
     Active Substance: PREDNISOLONE
     Dosage: 2 MG
     Route: 048
     Dates: start: 20210909, end: 20211006
  50. PREDNISOLONE [Concomitant]
     Active Substance: PREDNISOLONE
     Dosage: 1.5 MG
     Route: 048
     Dates: start: 20211007, end: 20211201
  51. PREDNISOLONE [Concomitant]
     Active Substance: PREDNISOLONE
     Dosage: 1 MG
     Route: 048
     Dates: start: 20211202, end: 20220323
  52. MONTELUKAST [Concomitant]
     Active Substance: MONTELUKAST SODIUM
     Indication: Product used for unknown indication
     Dosage: 5 MG
     Route: 048
     Dates: start: 20200910
  53. CARBOCYSTEINE [Concomitant]
     Active Substance: CARBOCYSTEINE
     Indication: Product used for unknown indication
     Dosage: 500 MG
     Route: 048
     Dates: start: 20200910, end: 20220616
  54. CARBOCYSTEINE [Concomitant]
     Active Substance: CARBOCYSTEINE
     Dosage: 750 MG
     Route: 048
     Dates: start: 20220728, end: 20220804
  55. EPINASTINE [Concomitant]
     Active Substance: EPINASTINE
     Indication: Product used for unknown indication
     Dosage: 10 MG
     Route: 048
     Dates: start: 20200910, end: 20210407
  56. EPINASTINE [Concomitant]
     Active Substance: EPINASTINE
     Dosage: 10 MG
     Route: 048
     Dates: start: 20210415

REACTIONS (10)
  - Tonsillitis [Recovered/Resolved]
  - Enteritis infectious [Recovered/Resolved]
  - Urticaria [Recovering/Resolving]
  - Infection [Recovering/Resolving]
  - Food poisoning [Unknown]
  - Pharyngitis [Recovered/Resolved]
  - COVID-19 [Recovered/Resolved]
  - Pyrexia [Unknown]
  - Cough [Unknown]
  - Bronchitis [Recovered/Resolved]

NARRATIVE: CASE EVENT DATE: 20210330
